FAERS Safety Report 8619310-7 (Version None)
Quarter: 2012Q3

REPORT INFORMATION
  Report Type: 
  Country: None (occurrence: None)
  Receive Date: 20120824
  Receipt Date: 20120817
  Transmission Date: 20120928
  Serious: Yes (Death, Disabling)
  Sender: FDA-Public Use
  Company Number: CN-ASTELLAS-2012US007175

PATIENT
  Sex: Male
  Weight: 60 kg

DRUGS (1)
  1. TARCEVA [Suspect]
     Indication: NON-SMALL CELL LUNG CANCER
     Dosage: 150 MG, UID/QD
     Route: 048
     Dates: start: 20120301, end: 20120610

REACTIONS (3)
  - BLINDNESS [None]
  - PURULENCE [None]
  - DEATH [None]
